FAERS Safety Report 10060311 (Version 2)
Quarter: 2015Q1

REPORT INFORMATION
  Report Type: Report from Study
  Country: US (occurrence: US)
  Receive Date: 20140404
  Receipt Date: 20150206
  Transmission Date: 20150720
  Serious: Yes (Death)
  Sender: FDA-Public Use
  Company Number: PHHO2014US004651

PATIENT
  Age: 63 Year
  Sex: Male
  Weight: 69.85 kg

DRUGS (1)
  1. TASIGNA [Suspect]
     Active Substance: NILOTINIB
     Indication: CHRONIC MYELOID LEUKAEMIA
     Dosage: 300 MG, BID
     Route: 048
     Dates: start: 20120924, end: 201310

REACTIONS (1)
  - Death [Fatal]

NARRATIVE: CASE EVENT DATE: 20131006
